FAERS Safety Report 18221364 (Version 4)
Quarter: 2020Q4

REPORT INFORMATION
  Report Type: Spontaneous
  Country: NL (occurrence: NL)
  Receive Date: 20200902
  Receipt Date: 20201102
  Transmission Date: 20210113
  Serious: Yes (Disabling)
  Sender: FDA-Public Use
  Company Number: NL-MYLANLABS-2020M1075148

PATIENT
  Age: 64 Year
  Sex: Male

DRUGS (2)
  1. ITRACONAZOLE. [Suspect]
     Active Substance: ITRACONAZOLE
     Indication: ONYCHOMYCOSIS
     Dosage: 2 DOSAGE FORM, BID(2 TIMES PER DAY 2 CAPS8ULE, PULSE THERAPY)
     Dates: start: 20080827
  2. NITROGLYCERINE [Concomitant]
     Active Substance: NITROGLYCERIN
     Dosage: UNK(WHEN NEEDED)
     Dates: start: 20080718

REACTIONS (2)
  - Paraplegia [Not Recovered/Not Resolved]
  - Spinal cord haemorrhage [Not Recovered/Not Resolved]
